FAERS Safety Report 20351675 (Version 1)
Quarter: 2022Q1

REPORT INFORMATION
  Report Type: Spontaneous
  Country: DE (occurrence: DE)
  Receive Date: 20220119
  Receipt Date: 20220119
  Transmission Date: 20220423
  Serious: Yes (Other)
  Sender: FDA-Public Use
  Company Number: None

PATIENT
  Sex: Male
  Weight: 70 kg

DRUGS (3)
  1. ESCITALOPRAM OXALATE [Suspect]
     Active Substance: ESCITALOPRAM OXALATE
     Indication: Depression
     Dosage: 20 MG
     Route: 048
     Dates: start: 20200813, end: 20210131
  2. ESCITALOPRAM OXALATE [Suspect]
     Active Substance: ESCITALOPRAM OXALATE
     Indication: Anxiety
  3. MIRTAZAPINE [Suspect]
     Active Substance: MIRTAZAPINE
     Indication: Product used for unknown indication
     Dosage: UNK
     Route: 065

REACTIONS (14)
  - Semen viscosity abnormal [Recovered/Resolved with Sequelae]
  - Semen volume decreased [Recovered/Resolved with Sequelae]
  - Impaired quality of life [Recovered/Resolved with Sequelae]
  - Testicular atrophy [Recovered/Resolved with Sequelae]
  - Testis discomfort [Recovered/Resolved with Sequelae]
  - Penile size reduced [Recovered/Resolved with Sequelae]
  - Genital anaesthesia [Recovered/Resolved with Sequelae]
  - Erectile dysfunction [Recovered/Resolved with Sequelae]
  - Depressed mood [Recovered/Resolved with Sequelae]
  - Male sexual dysfunction [Recovered/Resolved with Sequelae]
  - Sexual dysfunction [Recovered/Resolved with Sequelae]
  - Feelings of worthlessness [Recovered/Resolved with Sequelae]
  - Loss of libido [Recovered/Resolved with Sequelae]
  - Orgasmic sensation decreased [Recovered/Resolved with Sequelae]

NARRATIVE: CASE EVENT DATE: 20201001
